FAERS Safety Report 7049746-X (Version None)
Quarter: 2010Q4

REPORT INFORMATION
  Report Type: 
  Country: None (occurrence: None)
  Receive Date: 20101018
  Receipt Date: 20101007
  Transmission Date: 20110411
  Serious: Yes (Disabling)
  Sender: FDA-Public Use
  Company Number: B0678858A

PATIENT
  Age: 41 Year
  Sex: Female

DRUGS (2)
  1. TYVERB [Suspect]
     Route: 048
     Dates: end: 20100701
  2. HERCEPTIN [Suspect]
     Dosage: 1INJ CUMULATIVE DOSE
     Dates: start: 20100901

REACTIONS (3)
  - BLISTER [None]
  - DRUG INTERACTION [None]
  - ERYTHEMA [None]
